FAERS Safety Report 21513455 (Version 1)
Quarter: 2022Q4

REPORT INFORMATION
  Report Type: Spontaneous
  Country: US (occurrence: None)
  Receive Date: 20221026
  Receipt Date: 20221026
  Transmission Date: 20230112
  Serious: Yes (Life-Threatening)
  Sender: FDA-Public Use
  Company Number: None

PATIENT
  Age: 63 Year
  Sex: Female
  Weight: 81.9 kg

DRUGS (1)
  1. MIDAZOLAM [Suspect]
     Active Substance: MIDAZOLAM
     Indication: Preoperative care
     Dosage: FREQUENCY : ONCE;?
     Route: 040
     Dates: start: 20221019, end: 20221019

REACTIONS (6)
  - Hyperhidrosis [None]
  - Unresponsive to stimuli [None]
  - Pulse absent [None]
  - Pulseless electrical activity [None]
  - Ventricular fibrillation [None]
  - Drug hypersensitivity [None]

NARRATIVE: CASE EVENT DATE: 20221019
